FAERS Safety Report 22651401 (Version 1)
Quarter: 2023Q2

REPORT INFORMATION
  Report Type: Spontaneous
  Country: US (occurrence: None)
  Receive Date: 20230627
  Receipt Date: 20230627
  Transmission Date: 20230721
  Serious: No
  Sender: FDA-Public Use
  Company Number: None

PATIENT
  Age: 54 Year
  Sex: Male

DRUGS (2)
  1. YESCARTA [Suspect]
     Active Substance: AXICABTAGENE CILOLEUCEL
  2. Yescarta/Axicabtagene-ciloleucel [Concomitant]

REACTIONS (9)
  - Cytokine release syndrome [None]
  - Immune effector cell-associated neurotoxicity syndrome [None]
  - Febrile neutropenia [None]
  - Gastrointestinal haemorrhage [None]
  - Hallucination, visual [None]
  - Tremor [None]
  - Hypertonia [None]
  - Toxic encephalopathy [None]
  - Physical deconditioning [None]

NARRATIVE: CASE EVENT DATE: 20230109
